FAERS Safety Report 22004891 (Version 9)
Quarter: 2023Q2

REPORT INFORMATION
  Report Type: Spontaneous
  Country: AT (occurrence: AT)
  Receive Date: 20230217
  Receipt Date: 20230613
  Transmission Date: 20230721
  Serious: Yes (Hospitalization, Other)
  Sender: FDA-Public Use
  Company Number: AT-ROCHE-3271210

PATIENT
  Age: 67 Year
  Sex: Male
  Weight: 58 kg

DRUGS (74)
  1. CISPLATIN [Suspect]
     Active Substance: CISPLATIN
     Indication: Mantle cell lymphoma
     Dosage: DRUG SEPARATE DOSAGE NUMBER 1
     Route: 065
  2. CISPLATIN [Suspect]
     Active Substance: CISPLATIN
     Dosage: DRUG SEPARATE DOSAGE NUMBER 1
     Route: 065
  3. CISPLATIN [Suspect]
     Active Substance: CISPLATIN
     Dosage: DRUG SEPARATE DOSAGE NUMBER 1
     Route: 065
  4. CISPLATIN [Suspect]
     Active Substance: CISPLATIN
     Dosage: DRUG SEPARATE DOSAGE NUMBER 1
     Route: 065
  5. CISPLATIN [Suspect]
     Active Substance: CISPLATIN
     Dosage: DRUG SEPARATE DOSAGE NUMBER 1
     Route: 065
  6. CISPLATIN [Suspect]
     Active Substance: CISPLATIN
     Dosage: DRUG SEPARATE DOSAGE NUMBER 1
     Route: 065
  7. CISPLATIN [Suspect]
     Active Substance: CISPLATIN
     Dosage: DRUG SEPARATE DOSAGE NUMBER 1
     Route: 065
  8. CISPLATIN [Suspect]
     Active Substance: CISPLATIN
     Dosage: DRUG SEPARATE DOSAGE NUMBER 1
     Route: 065
  9. CYTARABINE [Suspect]
     Active Substance: CYTARABINE
     Indication: Mantle cell lymphoma
     Dosage: DRUG SEPARATE DOSAGE NUMBER 1
     Route: 065
  10. CYTARABINE [Suspect]
     Active Substance: CYTARABINE
     Dosage: UNK, DRUG SEPARATE DOSAGE NUMBER 1
     Route: 065
  11. CYTARABINE [Suspect]
     Active Substance: CYTARABINE
     Dosage: UNK, DRUG SEPARATE DOSAGE NUMBER 1
     Route: 065
  12. CYTARABINE [Suspect]
     Active Substance: CYTARABINE
     Dosage: UNK
     Route: 065
  13. CYTARABINE [Suspect]
     Active Substance: CYTARABINE
     Dosage: UNK (DRUG SEPARATE DOSAGE NUMBER 1)
  14. VENETOCLAX [Suspect]
     Active Substance: VENETOCLAX
     Indication: Mantle cell lymphoma
     Dosage: UNK (DRUG SEPARATE DOSAGE NUMBER 1)
     Route: 048
     Dates: start: 202206, end: 202207
  15. VENETOCLAX [Suspect]
     Active Substance: VENETOCLAX
     Dosage: UNK
     Route: 065
  16. VENETOCLAX [Suspect]
     Active Substance: VENETOCLAX
     Dosage: UNK
     Route: 065
  17. VENETOCLAX [Suspect]
     Active Substance: VENETOCLAX
     Dosage: UNK, DRUG SEPARATE DOSAGE NUMBER 1
     Route: 065
  18. VENETOCLAX [Suspect]
     Active Substance: VENETOCLAX
     Dosage: UNK,DRUG SEPARATE DOSAGE NUMBER 1
     Route: 065
  19. VENETOCLAX [Suspect]
     Active Substance: VENETOCLAX
     Dosage: UNK
     Route: 065
  20. VENETOCLAX [Suspect]
     Active Substance: VENETOCLAX
     Dosage: UNK, DRUG SEPARATE DOSAGE NUMBER 1
     Route: 065
  21. VENETOCLAX [Suspect]
     Active Substance: VENETOCLAX
     Dosage: UNK, DRUG SEPARATE DOSAGE NUMBER 1
     Route: 065
  22. VENETOCLAX [Suspect]
     Active Substance: VENETOCLAX
     Dosage: UNK, DRUG SEPARATE DOSAGE NUMBER 1
     Route: 065
  23. VENETOCLAX [Suspect]
     Active Substance: VENETOCLAX
     Dosage: UNK
     Route: 065
  24. VENETOCLAX [Suspect]
     Active Substance: VENETOCLAX
     Dosage: UNK, DRUG SEPARATE DOSAGE NUMBER 1
     Route: 065
  25. VENETOCLAX [Suspect]
     Active Substance: VENETOCLAX
     Indication: Mantle cell lymphoma
     Dosage: UNK, DRUG SEPARATE DOSAGE NUMBER 1
     Route: 048
     Dates: start: 202206, end: 202207
  26. PREDNISOLONE [Suspect]
     Active Substance: PREDNISOLONE
     Indication: Mantle cell lymphoma
     Dosage: UNK (DRUG SEPARATE DOSAGE NUMBER 1)
     Route: 065
     Dates: start: 201909, end: 202201
  27. PREDNISOLONE [Suspect]
     Active Substance: PREDNISOLONE
     Dosage: UNK
     Route: 065
     Dates: start: 201909, end: 202201
  28. CARMUSTINE [Suspect]
     Active Substance: CARMUSTINE
     Indication: Mantle cell lymphoma
     Dosage: DRUG SEPARATE DOSAGE NUMBER 1
     Route: 065
  29. CARMUSTINE [Suspect]
     Active Substance: CARMUSTINE
     Dosage: UNK,DRUG SEPARATE DOSAGE NUMBER 1
     Route: 065
  30. CARMUSTINE [Suspect]
     Active Substance: CARMUSTINE
     Dosage: UNK
     Route: 065
  31. CARMUSTINE [Suspect]
     Active Substance: CARMUSTINE
     Dosage: UNK
     Route: 065
  32. MELPHALAN [Suspect]
     Active Substance: MELPHALAN
     Indication: Mantle cell lymphoma
     Dosage: DRUG SEPARATE DOSAGE NUMBER 1
     Route: 065
  33. MELPHALAN [Suspect]
     Active Substance: MELPHALAN
     Dosage: UNK, DRUG SEPARATE DOSAGE NUMBER 1
     Route: 065
  34. MELPHALAN [Suspect]
     Active Substance: MELPHALAN
     Dosage: UNK, DRUG SEPARATE DOSAGE NUMBER 1
     Route: 065
  35. MELPHALAN [Suspect]
     Active Substance: MELPHALAN
     Dosage: UNK, DRUG SEPARATE DOSAGE NUMBER 1
     Route: 065
  36. RITUXIMAB [Suspect]
     Active Substance: RITUXIMAB
     Indication: Mantle cell lymphoma
     Dosage: DRUG SEPARATE DOSAGE NUMBER 1
     Route: 058
     Dates: start: 201909, end: 202212
  37. RITUXIMAB [Suspect]
     Active Substance: RITUXIMAB
     Dosage: UNK
     Route: 058
     Dates: start: 201909, end: 202201
  38. RITUXIMAB [Suspect]
     Active Substance: RITUXIMAB
     Dosage: UNK (DRUG SEPARATE DOSAGE NUMBER 1)START DATE 2022
     Route: 058
     Dates: start: 2022, end: 202212
  39. RITUXIMAB [Suspect]
     Active Substance: RITUXIMAB
     Dosage: UNK (SOLUTION FOR INJECTION, DRUG SEPARATE DOSAGE NUMBER 1)START DATE: 2022
     Route: 058
     Dates: end: 202212
  40. CYCLOPHOSPHAMIDE [Suspect]
     Active Substance: CYCLOPHOSPHAMIDE
     Indication: Mantle cell lymphoma
     Dosage: UNK, DRUG SEPARATE DOSAGE NUMBER 1
     Route: 065
     Dates: start: 201909, end: 201909
  41. CYCLOPHOSPHAMIDE [Suspect]
     Active Substance: CYCLOPHOSPHAMIDE
     Dosage: UNK
     Route: 065
     Dates: start: 201909, end: 202201
  42. CYCLOPHOSPHAMIDE [Suspect]
     Active Substance: CYCLOPHOSPHAMIDE
     Dosage: UNK
     Route: 065
     Dates: start: 201909, end: 202201
  43. IMBRUVICA [Suspect]
     Active Substance: IBRUTINIB
     Indication: Mantle cell lymphoma
     Dosage: DRUG SEPARATE DOSAGE NUMBER 1
     Route: 048
     Dates: start: 202206, end: 202207
  44. IMBRUVICA [Suspect]
     Active Substance: IBRUTINIB
     Dosage: UNK, DRUG SEPARATE DOSAGE NUMBER 1
     Route: 065
     Dates: start: 202206, end: 202207
  45. IMBRUVICA [Suspect]
     Active Substance: IBRUTINIB
     Dosage: DRUG SEPARATE DOSAGE NUMBER 1
     Route: 048
     Dates: start: 202206, end: 202207
  46. IMBRUVICA [Suspect]
     Active Substance: IBRUTINIB
     Dosage: DRUG SEPARATE DOSAGE NUMBER 1
     Route: 048
     Dates: start: 202206, end: 202207
  47. DEXAMETHASONE [Suspect]
     Active Substance: DEXAMETHASONE
     Indication: Mantle cell lymphoma
     Dosage: DRUG SEPARATE DOSAGE NUMBER 1
     Route: 065
  48. DEXAMETHASONE [Suspect]
     Active Substance: DEXAMETHASONE
     Dosage: UNK, DRUG SEPARATE DOSAGE NUMBER 1
     Route: 065
  49. DEXAMETHASONE [Suspect]
     Active Substance: DEXAMETHASONE
     Dosage: UNK
     Route: 065
  50. ETOPOSIDE [Suspect]
     Active Substance: ETOPOSIDE
     Indication: Mantle cell lymphoma
     Dosage: DRUG SEPARATE DOSAGE NUMBER 1
     Route: 065
  51. ETOPOSIDE [Suspect]
     Active Substance: ETOPOSIDE
     Dosage: UNK, DRUG SEPARATE DOSAGE NUMBER 1
     Route: 065
     Dates: start: 201909, end: 202201
  52. ETOPOSIDE [Suspect]
     Active Substance: ETOPOSIDE
     Dosage: UNK
     Route: 065
  53. ETOPOSIDE [Suspect]
     Active Substance: ETOPOSIDE
     Dosage: UNK
     Route: 065
  54. VINCRISTINE [Suspect]
     Active Substance: VINCRISTINE
     Indication: Mantle cell lymphoma
     Dosage: UNK, DRUG SEPARATE DOSAGE NUMBER 1
     Route: 065
     Dates: start: 201909, end: 202201
  55. VINCRISTINE [Suspect]
     Active Substance: VINCRISTINE
     Dosage: UNK, DRUG SEPARATE DOSAGE NUMBER 1
     Route: 065
     Dates: start: 201909, end: 202201
  56. VINCRISTINE [Suspect]
     Active Substance: VINCRISTINE
     Dosage: UNK
     Route: 065
     Dates: start: 201909, end: 202201
  57. VINCRISTINE [Suspect]
     Active Substance: VINCRISTINE
     Dosage: UNK
     Route: 065
     Dates: start: 201909, end: 202202
  58. VINCRISTINE [Suspect]
     Active Substance: VINCRISTINE
     Indication: Mantle cell lymphoma
     Dosage: UNK (DRUG SEPARATE DOSAGE NUMBER 1)
     Route: 065
     Dates: start: 201909, end: 202201
  59. DOXORUBICIN [Suspect]
     Active Substance: DOXORUBICIN
     Indication: Mantle cell lymphoma
     Dosage: UNK (DRUG SEPARATE DOSAGE NUMBER 1)
     Dates: start: 201909, end: 202201
  60. DOXORUBICIN [Suspect]
     Active Substance: DOXORUBICIN
     Dosage: UNK, DRUG SEPARATE DOSAGE NUMBER 1
     Route: 065
     Dates: start: 201909, end: 202201
  61. DOXORUBICIN [Suspect]
     Active Substance: DOXORUBICIN
     Dosage: UNK, DRUG SEPARATE DOSAGE NUMBER 1
     Route: 065
     Dates: start: 201909, end: 202201
  62. DOXORUBICIN [Suspect]
     Active Substance: DOXORUBICIN
     Dosage: UNK
     Route: 065
     Dates: start: 201909, end: 202201
  63. GLOFITAMAB [Suspect]
     Active Substance: GLOFITAMAB
     Indication: Mantle cell lymphoma
     Dosage: 30 MILLIGRAM, Q3W
     Route: 042
     Dates: start: 20230131, end: 20230411
  64. AMLODIPINE [Concomitant]
     Active Substance: AMLODIPINE BESYLATE
     Indication: Hypertension
     Dosage: 10 MILLIGRAM
     Route: 065
  65. LORAZEPAM [Concomitant]
     Active Substance: LORAZEPAM
     Dosage: UNK
     Route: 065
  66. CALCIUM CARBONATE\CHOLECALCIFEROL [Concomitant]
     Active Substance: CALCIUM CARBONATE\CHOLECALCIFEROL
     Indication: Prophylaxis
     Dosage: UNK, 1 TAB
     Route: 065
  67. TAMSULOSIN HYDROCHLORIDE [Concomitant]
     Active Substance: TAMSULOSIN HYDROCHLORIDE
     Dosage: UNK
     Route: 065
  68. ACETAMINOPHEN [Concomitant]
     Active Substance: ACETAMINOPHEN
     Dosage: UNK
     Route: 065
  69. CHOLECALCIFEROL [Concomitant]
     Active Substance: CHOLECALCIFEROL
     Dosage: UNK
     Route: 065
  70. VALACYCLOVIR HYDROCHLORIDE [Concomitant]
     Active Substance: VALACYCLOVIR HYDROCHLORIDE
     Dosage: UNK
     Route: 065
  71. Acemin [Concomitant]
     Indication: Hypertension
     Dosage: 5 MILLIGRAM, QD
     Route: 065
  72. PANTOPRAZOLE SODIUM [Concomitant]
     Active Substance: PANTOPRAZOLE SODIUM
     Dosage: UNK
     Route: 065
  73. Paspertin [Concomitant]
     Dosage: UNK
     Route: 065
  74. EUTHYROX [Concomitant]
     Active Substance: LEVOTHYROXINE SODIUM
     Indication: Hypothyroidism
     Dosage: 50 MICROGRAM, QD
     Route: 065

REACTIONS (5)
  - Large intestine perforation [Recovered/Resolved]
  - Disease progression [Unknown]
  - Mantle cell lymphoma [Unknown]
  - Blood lactate dehydrogenase increased [Unknown]
  - Off label use [Unknown]

NARRATIVE: CASE EVENT DATE: 20230211
